FAERS Safety Report 5245934-3 (Version None)
Quarter: 2007Q1

REPORT INFORMATION
  Report Type: 
  Country: None (occurrence: None)
  Receive Date: 20070220
  Receipt Date: 20070117
  Transmission Date: 20070707
  Serious: Yes (Other)
  Sender: FDA-Public Use
  Company Number: 6029201

PATIENT
  Sex: Female

DRUGS (9)
  1. CARDOL (SOTALOL) [Suspect]
     Indication: DRUG USE FOR UNKNOWN INDICATION
     Dosage: 80,000 MG (80 MG,1 IN 1 D)
     Route: 048
  2. ARICEPT [Suspect]
     Indication: DRUG USE FOR UNKNOWN INDICATION
  3. RAMIPRIL [Concomitant]
  4. FOSAMAX [Concomitant]
  5. SOLPRIN (ACETYLSALICYLATE CALCIUM) [Concomitant]
  6. CENOVIS MULTIVITAMINS + MINERALS (ASCORBIC ACID, PYRIDOXINE HYDROCHLOR [Concomitant]
  7. HYDREA [Concomitant]
  8. NITROLINGUAL (GLYCERYL TRINITRATE) [Concomitant]
  9. AGININE [Concomitant]

REACTIONS (3)
  - ATRIOVENTRICULAR BLOCK [None]
  - DRUG INTERACTION [None]
  - MYOCARDIAL ISCHAEMIA [None]
